FAERS Safety Report 17751587 (Version 2)
Quarter: 2020Q3

REPORT INFORMATION
  Report Type: Spontaneous
  Country: US (occurrence: US)
  Receive Date: 20200506
  Receipt Date: 20200814
  Transmission Date: 20201102
  Serious: Yes (Other)
  Sender: FDA-Public Use
  Company Number: US-TEVA-2020-US-1231344

PATIENT
  Sex: Male

DRUGS (5)
  1. CYCLOBENZAPRINE. [Concomitant]
     Active Substance: CYCLOBENZAPRINE
  2. ALBUTEROL. [Concomitant]
     Active Substance: ALBUTEROL
  3. DOXYCYCLINE. [Concomitant]
     Active Substance: DOXYCYCLINE
  4. COPAXONE [Suspect]
     Active Substance: GLATIRAMER ACETATE
     Indication: MULTIPLE SCLEROSIS
     Dosage: 40 MG THRICE A WEEK
     Route: 058
     Dates: start: 20171027
  5. FLUTICASONE. [Concomitant]
     Active Substance: FLUTICASONE

REACTIONS (6)
  - Throat tightness [Not Recovered/Not Resolved]
  - Back pain [Not Recovered/Not Resolved]
  - Injection site warmth [Not Recovered/Not Resolved]
  - Hot flush [Not Recovered/Not Resolved]
  - Adverse reaction [Recovered/Resolved]
  - Injection site irritation [Not Recovered/Not Resolved]
